FAERS Safety Report 11589010 (Version 2)
Quarter: 2015Q4

REPORT INFORMATION
  Report Type: Spontaneous
  Country: FR (occurrence: FR)
  Receive Date: 20151002
  Receipt Date: 20151019
  Transmission Date: 20160304
  Serious: Yes (Hospitalization, Other)
  Sender: FDA-Public Use
  Company Number: FR-PFIZER INC-2015324409

PATIENT
  Age: 77 Year
  Sex: Male

DRUGS (5)
  1. INEGY [Suspect]
     Active Substance: EZETIMIBE\SIMVASTATIN
     Indication: HYPERCHOLESTEROLAEMIA
     Dosage: UNK
     Route: 048
     Dates: end: 20150901
  2. CORDARONE [Suspect]
     Active Substance: AMIODARONE HYDROCHLORIDE
     Indication: MYOCARDIAL ISCHAEMIA
     Dosage: 200 MG, DAILY
     Route: 048
     Dates: start: 20150806, end: 20150901
  3. LANGORAN [Suspect]
     Active Substance: ISOSORBIDE DINITRATE
     Indication: MYOCARDIAL ISCHAEMIA
     Dosage: UNK
     Route: 048
     Dates: end: 20150901
  4. XARELTO [Concomitant]
     Active Substance: RIVAROXABAN
     Dosage: UNK
     Dates: start: 20150806, end: 20150820
  5. DAIVOBET [Suspect]
     Active Substance: BETAMETHASONE DIPROPIONATE\CALCIPOTRIENE
     Dosage: UNK
     Route: 061
     Dates: end: 20150901

REACTIONS (4)
  - Melaena [Recovering/Resolving]
  - Haematuria [Recovering/Resolving]
  - Thrombocytopenic purpura [Recovering/Resolving]
  - Haematoma [Recovering/Resolving]

NARRATIVE: CASE EVENT DATE: 201508
